FAERS Safety Report 5907130-3 (Version None)
Quarter: 2008Q4

REPORT INFORMATION
  Report Type: 
  Country: None (occurrence: None)
  Receive Date: 20081003
  Receipt Date: 20080923
  Transmission Date: 20090506
  Serious: Yes (Death, Other)
  Sender: FDA-Public Use
  Company Number: US-BAYER-200820613NA

PATIENT
  Sex: Male

DRUGS (2)
  1. MAGNEVIST [Suspect]
     Indication: NUCLEAR MAGNETIC RESONANCE IMAGING
     Route: 042
     Dates: start: 20040630, end: 20040630
  2. MAGNEVIST [Suspect]
     Route: 042
     Dates: start: 20051129, end: 20051129

REACTIONS (2)
  - CARDIOVASCULAR DISORDER [None]
  - NEPHROGENIC SYSTEMIC FIBROSIS [None]
